FAERS Safety Report 5231469-0 (Version None)
Quarter: 2007Q1

REPORT INFORMATION
  Report Type: 
  Country: None (occurrence: None)
  Receive Date: 20070206
  Receipt Date: 20070129
  Transmission Date: 20070707
  Serious: Yes (Other)
  Sender: FDA-Public Use
  Company Number: HQWYE834129JAN07

PATIENT
  Age: 45 Year
  Sex: Female

DRUGS (8)
  1. PROPRANOLOL HYDROCHLORIDE [Suspect]
     Indication: BLOOD PRESSURE INCREASED
     Dosage: INCREMENTAL DOSES UP TO 2 MG
     Route: 042
  2. PROPRANOLOL HYDROCHLORIDE [Suspect]
     Indication: HEART RATE INCREASED
  3. PROPOFOL [Concomitant]
     Indication: GENERAL ANAESTHESIA
     Dosage: 2 MG/KG
     Route: 065
  4. NITROUS OXIDE W/ OXYGEN [Concomitant]
     Indication: GENERAL ANAESTHESIA
     Dosage: NOT PROVIDED
     Route: 065
  5. ROCURONIUM BROMIDE [Concomitant]
     Indication: GENERAL ANAESTHESIA
     Dosage: 0.6 MG/KG
     Route: 065
  6. SEVOFLURANE [Concomitant]
     Indication: GENERAL ANAESTHESIA
     Dosage: IN A MIXTURE OF NITROUS OXIDE AND OXYGEN 2:1
     Route: 065
  7. LIDOCAINE [Concomitant]
     Indication: GENERAL ANAESTHESIA
     Dosage: 1 MG/KG
     Route: 065
  8. FENTANYL TRANSDERMAL SYSTEM [Concomitant]
     Indication: GENERAL ANAESTHESIA
     Dosage: 2 UG/KG
     Route: 065

REACTIONS (2)
  - BRADYCARDIA [None]
  - PULMONARY OEDEMA [None]
